FAERS Safety Report 23535984 (Version 1)
Quarter: 2024Q1

REPORT INFORMATION
  Report Type: Spontaneous
  Country: JP (occurrence: JP)
  Receive Date: 20240219
  Receipt Date: 20240219
  Transmission Date: 20240410
  Serious: Yes (Other)
  Sender: FDA-Public Use
  Company Number: JP-BRISTOL-MYERS SQUIBB COMPANY-2024-023025

PATIENT
  Age: 54 Year
  Sex: Female

DRUGS (2)
  1. TRIAMCINOLONE ACETONIDE [Suspect]
     Active Substance: TRIAMCINOLONE ACETONIDE
     Indication: Periarthritis calcarea
     Dosage: DOSE : UNAVAILABLE;     FREQ : UNAVAILABLE
  2. CANDESARTAN [Concomitant]
     Active Substance: CANDESARTAN
     Indication: Product used for unknown indication

REACTIONS (6)
  - Anaphylactic reaction [Unknown]
  - Dysphoria [Unknown]
  - Vomiting [Unknown]
  - Nausea [Unknown]
  - Feeling cold [Unknown]
  - Shock [Unknown]
